FAERS Safety Report 26102045 (Version 1)
Quarter: 2025Q4

REPORT INFORMATION
  Report Type: Spontaneous
  Country: MA (occurrence: MA)
  Receive Date: 20251128
  Receipt Date: 20251128
  Transmission Date: 20260117
  Serious: Yes (Hospitalization, Other)
  Sender: GILEAD
  Company Number: MA-GILEAD-2025-0738693

PATIENT
  Age: 62 Year
  Sex: Female

DRUGS (1)
  1. ATRIPLA [Suspect]
     Active Substance: EFAVIRENZ\EMTRICITABINE\TENOFOVIR DISOPROXIL FUMARATE
     Indication: HIV infection
     Dosage: UNK
     Route: 065
     Dates: start: 2015

REACTIONS (3)
  - Fanconi syndrome acquired [Recovering/Resolving]
  - Chronic kidney disease [Recovering/Resolving]
  - Osteomalacia [Recovering/Resolving]
